FAERS Safety Report 4396235-7 (Version None)
Quarter: 2004Q2

REPORT INFORMATION
  Report Type: 
  Country: None (occurrence: None)
  Receive Date: 20040621
  Receipt Date: 20031121
  Transmission Date: 20050107
  Serious: Yes (Death)
  Sender: FDA-Public Use
  Company Number: USA-2003-0010970

PATIENT
  Age: 23 Year
  Sex: Male
  Weight: 137.9 kg

DRUGS (7)
  1. OXYCONTIN [Suspect]
  2. HYDROCODONE BITARTRATE [Suspect]
  3. METHADONE HCL [Suspect]
  4. ACETAMINOPHEN [Suspect]
  5. CAFFEINE (CAFFEINE) [Suspect]
  6. DIHYDROCODEINE (DIHYDROCODEINE) [Suspect]
  7. BENZODIAZEPINE (BENZODIAZEPINE) [Suspect]

REACTIONS (1)
  - OVERDOSE [None]
